FAERS Safety Report 8776660 (Version 1)
Quarter: 2012Q4

REPORT INFORMATION
  Report Type: 
  Country: US (occurrence: US)
  Receive Date: 20120910
  Receipt Date: 20120910
  Transmission Date: 20130627
  Serious: Yes (Other)
  Sender: FDA-Public Use
  Company Number: PHEH2012US016863

PATIENT
  Sex: Female

DRUGS (7)
  1. TEGRETOL [Suspect]
     Indication: EPILEPSY
     Dosage: 200 mg, UNK
  2. TEGRETOL [Suspect]
     Dosage: 100 mg/5 ml, UNK
     Route: 048
  3. CARBAMAZEPINE [Concomitant]
     Dosage: UNK UKN, UNK
  4. KEPPRA [Concomitant]
     Dosage: UNK UKN, UNK
  5. ASPIRIN [Concomitant]
     Dosage: UNK UKN, UNK
  6. CAPTOPRIL [Concomitant]
     Dosage: UNK UKN, UNK
  7. VITAMINS NOS [Concomitant]
     Dosage: UNK UKN, UNK

REACTIONS (5)
  - Epilepsy [Unknown]
  - Convulsion [Unknown]
  - Wrong technique in drug usage process [Unknown]
  - Incorrect dose administered [Unknown]
  - Tremor [Unknown]
